FAERS Safety Report 4264993-8 (Version None)
Quarter: 2004Q1

REPORT INFORMATION
  Report Type: 
  Country: None (occurrence: None)
  Receive Date: 20040106
  Receipt Date: 20031110
  Transmission Date: 20041129
  Serious: Yes (Other)
  Sender: FDA-Public Use
  Company Number: WAES 0311USA00974

PATIENT
  Age: 49 Year
  Sex: Female

DRUGS (3)
  1. FOSAMAX [Suspect]
     Indication: OSTEOPENIA
     Route: 048
  2. ESTROGENS (UNSPECIFIED) [Concomitant]
  3. PREDNISONE [Concomitant]

REACTIONS (2)
  - FEMUR FRACTURE [None]
  - FRACTURE DELAYED UNION [None]
